FAERS Safety Report 5128219-5 (Version None)
Quarter: 2006Q4

REPORT INFORMATION
  Report Type: 
  Country: None (occurrence: None)
  Receive Date: 20061011
  Receipt Date: 20060926
  Transmission Date: 20070319
  Serious: Yes (Hospitalization, Other)
  Sender: FDA-Public Use
  Company Number: 2006AL002975

PATIENT
  Age: 24 Year
  Sex: Female

DRUGS (1)
  1. NIFEDIPINE [Suspect]
     Indication: TOCOLYSIS
     Dosage: TRPL
     Route: 064

REACTIONS (9)
  - DRUG EXPOSURE DURING PREGNANCY [None]
  - FLUSHING [None]
  - HEADACHE [None]
  - HYPOTENSION [None]
  - INTRA-UTERINE DEATH [None]
  - NAUSEA [None]
  - PALPITATIONS [None]
  - VISUAL DISTURBANCE [None]
  - VOMITING [None]
